FAERS Safety Report 12761399 (Version 1)
Quarter: 2016Q3

REPORT INFORMATION
  Report Type: Spontaneous
  Country: US (occurrence: US)
  Receive Date: 20160920
  Receipt Date: 20160920
  Transmission Date: 20161109
  Serious: No
  Sender: FDA-Public Use
  Company Number: US-AMGEN-USASP2016114116

PATIENT
  Age: 22 Year
  Sex: Female

DRUGS (2)
  1. ENBREL [Suspect]
     Active Substance: ETANERCEPT
     Indication: PSORIATIC ARTHROPATHY
  2. ENBREL [Suspect]
     Active Substance: ETANERCEPT
     Indication: ANKYLOSING SPONDYLITIS
     Dosage: 50 MG, QWK
     Route: 065

REACTIONS (7)
  - Wrong technique in product usage process [Unknown]
  - Fatigue [Recovering/Resolving]
  - Pain [Recovering/Resolving]
  - Injection site bruising [Recovering/Resolving]
  - Drug effect decreased [Unknown]
  - Fibromyalgia [Unknown]
  - Arthritis [Unknown]

NARRATIVE: CASE EVENT DATE: 2011
